FAERS Safety Report 4939085-2 (Version None)
Quarter: 2006Q1

REPORT INFORMATION
  Report Type: 
  Country: None (occurrence: None)
  Receive Date: 20060306
  Receipt Date: 20060224
  Transmission Date: 20060701
  Serious: Yes (Hospitalization)
  Sender: FDA-Public Use
  Company Number: 2006028269

PATIENT
  Age: 39 Year
  Sex: Female

DRUGS (1)
  1. SUDAFED (PSEUDOEPHEDRINE) [Suspect]
     Indication: HEADACHE
     Dosage: 2 CAPLETS IN AM ONCE, ORAL
     Route: 048
     Dates: start: 19920624, end: 19920624

REACTIONS (2)
  - CONVULSION [None]
  - DIZZINESS [None]
